FAERS Safety Report 7374929-9 (Version None)
Quarter: 2011Q1

REPORT INFORMATION
  Report Type: 
  Country: None (occurrence: None)
  Receive Date: 20110325
  Receipt Date: 20110310
  Transmission Date: 20110831
  Serious: Yes (Hospitalization)
  Sender: FDA-Public Use
  Company Number: PHHY2011EC17462

PATIENT
  Sex: Female

DRUGS (3)
  1. EXFORGE [Suspect]
     Indication: HYPERTENSION
     Dosage: 1 DF, QD
     Route: 048
     Dates: start: 20100721, end: 20110304
  2. CHONDROITIN W/GLUCOSAMINE [Concomitant]
     Dosage: UNK
  3. LEVOTIROXINA [Concomitant]
     Dosage: 0.5 MG, DAILY

REACTIONS (2)
  - BACK PAIN [None]
  - INFLAMMATION [None]
